FAERS Safety Report 19528396 (Version 1)
Quarter: 2021Q3

REPORT INFORMATION
  Report Type: Spontaneous
  Country: CA (occurrence: CA)
  Receive Date: 20210713
  Receipt Date: 20210713
  Transmission Date: 20211014
  Serious: Yes (Other)
  Sender: FDA-Public Use
  Company Number: CA-ROCHE-2866233

PATIENT
  Age: 37 Year
  Sex: Female

DRUGS (8)
  1. ACTEMRA [Suspect]
     Active Substance: TOCILIZUMAB
     Route: 042
  2. FLAXSEED [Concomitant]
     Active Substance: FLAX SEED
     Route: 048
  3. IBUPROFEN. [Concomitant]
     Active Substance: IBUPROFEN
  4. SALVIA HISPANICA [Concomitant]
  5. IRON [Concomitant]
     Active Substance: IRON
  6. ACTEMRA [Suspect]
     Active Substance: TOCILIZUMAB
     Indication: RHEUMATOID ARTHRITIS
     Route: 042
  7. CELEBREX [Suspect]
     Active Substance: CELECOXIB
     Indication: ARTHRALGIA
     Route: 065
  8. SULFASALAZINE. [Concomitant]
     Active Substance: SULFASALAZINE

REACTIONS (6)
  - Myalgia [Unknown]
  - Osteoarthritis [Unknown]
  - Off label use [Unknown]
  - Heart rate increased [Unknown]
  - Abdominal discomfort [Unknown]
  - Intentional product use issue [Unknown]
